FAERS Safety Report 12611391 (Version 1)
Quarter: 2016Q3

REPORT INFORMATION
  Report Type: Spontaneous
  Country: JP (occurrence: JP)
  Receive Date: 20160801
  Receipt Date: 20160801
  Transmission Date: 20161109
  Serious: Yes (Death, Hospitalization, Other)
  Sender: FDA-Public Use
  Company Number: JP-009507513-1608JPN000322

PATIENT
  Age: 80 Year
  Sex: Male

DRUGS (47)
  1. DEXAMETHASONE. [Suspect]
     Active Substance: DEXAMETHASONE
     Indication: LYMPHOMA
     Dosage: (2 CYCLES) TWO COURSES
  2. PROCARBAZINE [Suspect]
     Active Substance: PROCARBAZINE
     Dosage: (2 CYCLES) TWO COURSES
  3. PROCARBAZINE [Suspect]
     Active Substance: PROCARBAZINE
     Dosage: EVERY OTHER DAY
     Dates: start: 201501
  4. PROCARBAZINE [Suspect]
     Active Substance: PROCARBAZINE
     Dosage: (2 CYCLES) TWO COURSES
  5. PROCARBAZINE [Suspect]
     Active Substance: PROCARBAZINE
     Route: 048
     Dates: start: 201502
  6. PROCARBAZINE [Suspect]
     Active Substance: PROCARBAZINE
     Dosage: (6 CYCLES) SIX COURSES
  7. VINCRISTINE SULFATE. [Suspect]
     Active Substance: VINCRISTINE SULFATE
     Indication: LYMPHOMA
     Dosage: (6 CYCLES) SIX COURSES; R-CHOP
  8. PROCARBAZINE [Suspect]
     Active Substance: PROCARBAZINE
     Dosage: (6 CYCLES) SIX COURSES
  9. PROCARBAZINE [Suspect]
     Active Substance: PROCARBAZINE
     Dates: start: 201412
  10. PROCARBAZINE [Suspect]
     Active Substance: PROCARBAZINE
     Dosage: EVERY OTHER DAY
     Route: 048
     Dates: start: 201501
  11. PREDNISOLONE. [Suspect]
     Active Substance: PREDNISOLONE
     Dosage: 20 MG, UNK
  12. CISPLATIN. [Suspect]
     Active Substance: CISPLATIN
     Indication: LYMPHOMA
     Dosage: (2 CYCLES) TWO COURSES, R-GDP
  13. PROCARBAZINE [Suspect]
     Active Substance: PROCARBAZINE
     Indication: LYMPHOMA
     Dosage: UNK
     Dates: start: 201502
  14. PROCARBAZINE [Suspect]
     Active Substance: PROCARBAZINE
     Dosage: (2 CYCLES) TWO COURSES
  15. OSELTAMIVIR [Suspect]
     Active Substance: OSELTAMIVIR
     Dosage: UNK
  16. OSELTAMIVIR [Suspect]
     Active Substance: OSELTAMIVIR
     Dosage: 75 MG, UNK
     Dates: start: 201502
  17. PERAMIVIR [Suspect]
     Active Substance: PERAMIVIR
     Dosage: 300 MG, UNK
     Dates: start: 201502
  18. PREDNISOLONE. [Suspect]
     Active Substance: PREDNISOLONE
     Dosage: 30 MG, PALLIATIVE
     Dates: start: 201412
  19. DOXORUBICIN [Suspect]
     Active Substance: DOXORUBICIN
     Indication: LYMPHOMA
     Dosage: (6 CYCLES) SIX COURSES
  20. PROCARBAZINE [Suspect]
     Active Substance: PROCARBAZINE
     Dosage: (2 CYCLES) TWO COURSES
  21. PROCARBAZINE [Suspect]
     Active Substance: PROCARBAZINE
     Dosage: (6 CYCLES) SIX COURSES
  22. PROCARBAZINE [Suspect]
     Active Substance: PROCARBAZINE
     Dosage: UNK
     Dates: start: 201502
  23. PROCARBAZINE [Suspect]
     Active Substance: PROCARBAZINE
     Dosage: EVERY OTHER DAY
     Dates: start: 201501
  24. PROCARBAZINE [Suspect]
     Active Substance: PROCARBAZINE
  25. PROCARBAZINE [Suspect]
     Active Substance: PROCARBAZINE
     Dosage: 50 MG, EVERY OTHER DAY
     Dates: start: 201501
  26. PROCARBAZINE [Suspect]
     Active Substance: PROCARBAZINE
     Route: 048
     Dates: start: 201501
  27. PROCARBAZINE [Suspect]
     Active Substance: PROCARBAZINE
     Dosage: (2 CYCLES) TWO COURSES
  28. PROCARBAZINE [Suspect]
     Active Substance: PROCARBAZINE
     Dosage: (6 CYCLES) SIX COURSES
  29. PREDNISOLONE. [Suspect]
     Active Substance: PREDNISOLONE
     Indication: LYMPHOMA
     Dosage: 30 MG, EVERY OTHER DAY; PALLIATIVE INTENT, PEP-C THERAPY
     Dates: start: 201501
  30. GEMCITABINE [Suspect]
     Active Substance: GEMCITABINE\GEMCITABINE HYDROCHLORIDE
     Indication: LYMPHOMA
     Dosage: (2 CYCLES) TWO COURSES; R-GDP
  31. ETOPOSIDE. [Suspect]
     Active Substance: ETOPOSIDE
     Indication: LYMPHOMA
     Dosage: 50 MG, QOD; PALLIATIVE INTENT, PEP-C THERAPY
     Dates: start: 201501
  32. ETOPOSIDE. [Suspect]
     Active Substance: ETOPOSIDE
     Dosage: UNK
     Dates: start: 201502
  33. BENDAMUSTINE [Suspect]
     Active Substance: BENDAMUSTINE
     Indication: LYMPHOMA
     Dosage: (2 CYCLES) TWO COURSES; R-B THERAPY
  34. RITUXIMAB [Suspect]
     Active Substance: RITUXIMAB
     Dosage: (2 CYCLES) TWO COURSES; R-B THERAPY
  35. PROCARBAZINE [Suspect]
     Active Substance: PROCARBAZINE
     Dosage: END OF FEBRUARY
     Dates: start: 201502
  36. OSELTAMIVIR [Suspect]
     Active Substance: OSELTAMIVIR
     Indication: INFLUENZA
     Dosage: 75 MG, UNK
     Dates: start: 201501
  37. CYCLOPHOSPHAMIDE. [Suspect]
     Active Substance: CYCLOPHOSPHAMIDE
     Dosage: UNK
     Dates: start: 201502
  38. PROCARBAZINE [Suspect]
     Active Substance: PROCARBAZINE
     Indication: INFLUENZA
     Dosage: 75 MG, BID
     Route: 048
     Dates: start: 201501
  39. PROCARBAZINE [Suspect]
     Active Substance: PROCARBAZINE
     Dosage: (6 CYCLES) SIX COURSES
  40. PROCARBAZINE [Suspect]
     Active Substance: PROCARBAZINE
     Dosage: (2 CYCLES) TWO COURSES
  41. PREDNISOLONE. [Suspect]
     Active Substance: PREDNISOLONE
     Dosage: (6 CYCLES) SIX COURSES
  42. CYCLOPHOSPHAMIDE. [Suspect]
     Active Substance: CYCLOPHOSPHAMIDE
     Dosage: 50 MG, QOD; PALLIATIVE INTENT, PEP-C THERAPY
     Dates: start: 201501
  43. RITUXIMAB [Suspect]
     Active Substance: RITUXIMAB
     Indication: LYMPHOMA
     Dosage: (6 CYCLES) SIX COURSES; R-CHOP
  44. PROCARBAZINE [Suspect]
     Active Substance: PROCARBAZINE
     Dosage: 300 MG, UNK
     Route: 042
     Dates: start: 201502
  45. PROCARBAZINE [Suspect]
     Active Substance: PROCARBAZINE
     Route: 042
     Dates: start: 201502
  46. PERAMIVIR [Suspect]
     Active Substance: PERAMIVIR
     Indication: INFLUENZA
     Dosage: 300 MG, UNK
     Dates: start: 201502
  47. CYCLOPHOSPHAMIDE. [Suspect]
     Active Substance: CYCLOPHOSPHAMIDE
     Indication: LYMPHOMA
     Dosage: (6 CYCLES) SIX COURSES; R-CHOP

REACTIONS (3)
  - Viral load increased [Fatal]
  - Condition aggravated [Fatal]
  - Drug resistance [Fatal]
